FAERS Safety Report 6555844-7 (Version None)
Quarter: 2010Q1

REPORT INFORMATION
  Report Type: 
  Country: None (occurrence: None)
  Receive Date: 20100128
  Receipt Date: 20100120
  Transmission Date: 20100710
  Serious: Yes (Other)
  Sender: FDA-Public Use
  Company Number: FR-ROCHE-680948

PATIENT
  Sex: Female

DRUGS (1)
  1. HERCEPTIN [Suspect]
     Dosage: STARTED TREATMENT 72 MONTHS AGO
     Route: 065

REACTIONS (1)
  - RENAL FAILURE [None]
